FAERS Safety Report 6098168-7 (Version None)
Quarter: 2009Q1

REPORT INFORMATION
  Report Type: 
  Country: None (occurrence: None)
  Receive Date: 20090227
  Receipt Date: 20090219
  Transmission Date: 20090719
  Serious: Yes (Other)
  Sender: FDA-Public Use
  Company Number: PHHY2009FR00942

PATIENT
  Sex: Female
  Weight: 62 kg

DRUGS (6)
  1. ACLASTA [Suspect]
     Indication: OSTEOPOROSIS
     Dosage: 5 MG, UNK
     Dates: start: 20081201
  2. FENOFIBRATE [Concomitant]
     Indication: HYPERCHOLESTEROLAEMIA
     Dosage: UNK
     Dates: start: 20040101
  3. PRACTAZIN [Concomitant]
     Indication: OEDEMA
     Dosage: UNK
     Dates: start: 20040101
  4. PRACTAZIN [Concomitant]
     Indication: VENOUS INSUFFICIENCY
  5. LEVOTHYROX [Concomitant]
     Indication: HYPOTHYROIDISM
     Dosage: UNK
     Dates: start: 19990101
  6. ESOMEPRAZOLE [Concomitant]
     Indication: GASTROOESOPHAGEAL REFLUX DISEASE
     Dosage: UNK
     Dates: start: 20080101

REACTIONS (6)
  - ARTHRALGIA [None]
  - INFLAMMATION [None]
  - MYALGIA [None]
  - PHLEBITIS [None]
  - PYREXIA [None]
  - THROMBOSIS [None]
